FAERS Safety Report 18139298 (Version 2)
Quarter: 2020Q4

REPORT INFORMATION
  Report Type: Spontaneous
  Country: US (occurrence: US)
  Receive Date: 20200812
  Receipt Date: 20201012
  Transmission Date: 20210113
  Serious: No
  Sender: FDA-Public Use
  Company Number: US-BRISTOL-MYERS SQUIBB COMPANY-BMS-2020-064374

PATIENT
  Sex: Male
  Weight: 86.17 kg

DRUGS (5)
  1. GABAPENTIN. [Concomitant]
     Active Substance: GABAPENTIN
     Indication: RHEUMATOID ARTHRITIS
     Dosage: UNK
     Route: 065
  2. ORENCIA [Suspect]
     Active Substance: ABATACEPT
     Dosage: 3 DOSAGE FORM, Q4WK
     Route: 042
     Dates: start: 202005
  3. ORENCIA [Suspect]
     Active Substance: ABATACEPT
     Indication: RHEUMATOID ARTHRITIS
     Dosage: UNK UNK, QWK
     Route: 065
     Dates: end: 202001
  4. ORENCIA [Suspect]
     Active Substance: ABATACEPT
     Dosage: UNK, QWK
     Route: 065
     Dates: start: 202005
  5. ORENCIA [Suspect]
     Active Substance: ABATACEPT
     Indication: RHEUMATOID ARTHRITIS
     Dosage: 3 DOSAGE FORM, Q4WK
     Route: 042
     Dates: end: 202001

REACTIONS (3)
  - Gait disturbance [Unknown]
  - Off label use [Unknown]
  - Bone pain [Unknown]
